FAERS Safety Report 6741405-3 (Version None)
Quarter: 2010Q2

REPORT INFORMATION
  Report Type: 
  Country: None (occurrence: None)
  Receive Date: 20100526
  Receipt Date: 20100520
  Transmission Date: 20101027
  Serious: Yes (Hospitalization)
  Sender: FDA-Public Use
  Company Number: JP-SANOFI-AVENTIS-200413513JP

PATIENT
  Age: 66 Year
  Sex: Female
  Weight: 55 kg

DRUGS (9)
  1. LEFLUNOMIDE [Suspect]
     Indication: RHEUMATOID ARTHRITIS
     Route: 048
     Dates: start: 20031031, end: 20031102
  2. LEFLUNOMIDE [Suspect]
     Route: 048
     Dates: start: 20031103, end: 20031109
  3. PREDNISOLONE [Concomitant]
     Indication: RHEUMATOID ARTHRITIS
     Route: 048
  4. SELBEX [Concomitant]
     Indication: GASTRITIS
     Route: 048
  5. CALCIUM PHOSPHATE DIBASIC [Concomitant]
     Indication: OSTEOPOROSIS
     Route: 048
  6. CLINORIL [Concomitant]
     Indication: RHEUMATOID ARTHRITIS
     Dosage: DOSE AS USED: 4 TABLETS DOSE UNIT: 100 MG
     Route: 048
  7. GLAKAY [Concomitant]
     Indication: OSTEOPOROSIS
     Dosage: DOSE AS USED: 2 CAPSULES
     Route: 048
  8. FERROMIA [Concomitant]
     Dosage: DOSE AS USED: 2 TABLETS
     Route: 048
  9. ACTONEL [Concomitant]
     Indication: OSTEOPOROSIS
     Dosage: DOSE AS USED: 1 TABLET
     Route: 048

REACTIONS (4)
  - ALANINE AMINOTRANSFERASE INCREASED [None]
  - ASPARTATE AMINOTRANSFERASE INCREASED [None]
  - PRURITUS GENERALISED [None]
  - VOMITING [None]
